FAERS Safety Report 9561704 (Version 1)
Quarter: 2013Q3

REPORT INFORMATION
  Report Type: Spontaneous
  Country: US (occurrence: None)
  Receive Date: 20130821
  Receipt Date: 20130821
  Transmission Date: 20140515
  Serious: No
  Sender: FDA-Public Use
  Company Number: 1000045191

PATIENT
  Age: 74 Year
  Sex: Female

DRUGS (3)
  1. TUDORZA PRESSAIR (ACLIDINIUM BROMIDE) (400 MICROGRAM, POWDER) [Suspect]
     Indication: CHRONIC OBSTRUCTIVE PULMONARY DISEASE
     Route: 048
     Dates: start: 20130514, end: 20130514
  2. COMBIVENT (COMBIVENT) [Concomitant]
  3. ALBUTEROL (ALBUTEROL) [Concomitant]

REACTIONS (3)
  - Tongue disorder [None]
  - Hypoaesthesia oral [None]
  - Swollen tongue [None]
